FAERS Safety Report 6230819-6 (Version None)
Quarter: 2009Q2

REPORT INFORMATION
  Report Type: 
  Country: None (occurrence: None)
  Receive Date: 20090616
  Receipt Date: 20090605
  Transmission Date: 20091009
  Serious: Yes (Other)
  Sender: FDA-Public Use
  Company Number: US-JNJFOC-20090602410

PATIENT
  Sex: Female
  Weight: 68.04 kg

DRUGS (4)
  1. REMICADE [Suspect]
     Dosage: TOTAL OF 27 INFUSIONS NOT INCLUDING THE 10 PRIOR TO REGISTRY
     Route: 042
  2. REMICADE [Suspect]
     Indication: CROHN'S DISEASE
     Dosage: 10 INFUSIONS PRIOR TO REGISTRY
     Route: 042
  3. AZATHIOPRINE [Concomitant]
  4. MESALAMINE [Concomitant]

REACTIONS (3)
  - DYSMENORRHOEA [None]
  - MENORRHAGIA [None]
  - PAPILLOMA VIRAL INFECTION [None]
